FAERS Safety Report 10447127 (Version 1)
Quarter: 2014Q3

REPORT INFORMATION
  Report Type: Spontaneous
  Country: US (occurrence: US)
  Receive Date: 20140911
  Receipt Date: 20140911
  Transmission Date: 20150326
  Serious: No
  Sender: FDA-Public Use
  Company Number: US-PFIZER INC-2014252002

PATIENT
  Age: 71 Year
  Sex: Male
  Weight: 83.45 kg

DRUGS (2)
  1. LYRICA [Suspect]
     Active Substance: PREGABALIN
     Indication: NEUROPATHY PERIPHERAL
     Dosage: 50 MG, 1X/DAY
     Dates: start: 2012
  2. LYRICA [Suspect]
     Active Substance: PREGABALIN
     Dosage: 75 MG, 1X/DAY
     Dates: start: 2014, end: 20140905

REACTIONS (3)
  - Tongue biting [Unknown]
  - Swollen tongue [Unknown]
  - Eye irritation [Unknown]

NARRATIVE: CASE EVENT DATE: 201408
